FAERS Safety Report 6988579-7 (Version None)
Quarter: 2010Q3

REPORT INFORMATION
  Report Type: 
  Country: None (occurrence: None)
  Receive Date: 20100914
  Receipt Date: 20100908
  Transmission Date: 20110219
  Serious: Yes (Death)
  Sender: FDA-Public Use
  Company Number: 2010090025

PATIENT
  Age: 53 Year
  Sex: Female

DRUGS (4)
  1. ONSOLIS [Suspect]
     Indication: CANCER PAIN
     Dosage: TITRATE UP TO 4-200 MCG/DOSE (UP TO 4 TIMES DAILY), BU
     Route: 002
     Dates: start: 20100803
  2. FENTANYL-100 [Concomitant]
  3. DILAUDID [Concomitant]
  4. OXYCONTIN [Concomitant]

REACTIONS (3)
  - CARDIAC FAILURE [None]
  - MALIGNANT NEOPLASM PROGRESSION [None]
  - NEUROENDOCRINE CARCINOMA [None]
